APPROVED DRUG PRODUCT: PROFENAL
Active Ingredient: SUPROFEN
Strength: 1%
Dosage Form/Route: SOLUTION/DROPS;OPHTHALMIC
Application: N019387 | Product #001
Applicant: ALCON LABORATORIES INC
Approved: Dec 23, 1988 | RLD: No | RS: No | Type: DISCN